FAERS Safety Report 9643386 (Version 1)
Quarter: 2013Q4

REPORT INFORMATION
  Report Type: Report from Study
  Country: ES (occurrence: ES)
  Receive Date: 20131024
  Receipt Date: 20131024
  Transmission Date: 20140711
  Serious: Yes (Life-Threatening, Hospitalization)
  Sender: FDA-Public Use
  Company Number: ES-ABBVIE-13P-144-1161218-00

PATIENT
  Age: 80 Year
  Sex: Male

DRUGS (6)
  1. DEPAKINE CHRONO [Suspect]
     Indication: PROPHYLAXIS
     Dosage: EXTENDED-RELEASE
     Route: 048
     Dates: start: 201209, end: 20120916
  2. TRAMADOL HYDROCHLORIDE [Interacting]
     Indication: PAIN
     Dosage: EXTENDED-RELEASE
     Route: 048
     Dates: start: 20120911, end: 20120916
  3. DICLOFENAC POTASSIUM [Interacting]
     Indication: PAIN
     Route: 048
     Dates: start: 20120911, end: 20120916
  4. GABAPENTIN [Interacting]
     Indication: PAIN
     Dosage: 600 MG DAILY
     Route: 048
     Dates: start: 201206, end: 20120916
  5. CLOPIDOGREL BISULFATE [Concomitant]
     Indication: PRODUCT USED FOR UNKNOWN INDICATION
     Dates: start: 201202
  6. PENTOXIFYLLINE [Concomitant]
     Indication: PRODUCT USED FOR UNKNOWN INDICATION
     Dates: start: 201203

REACTIONS (4)
  - Renal failure acute [Recovered/Resolved]
  - Confusional state [Recovered/Resolved]
  - Drug interaction [Recovered/Resolved]
  - Hyperkalaemia [Recovered/Resolved]
